FAERS Safety Report 6905201-6 (Version None)
Quarter: 2010Q3

REPORT INFORMATION
  Report Type: 
  Country: None (occurrence: None)
  Receive Date: 20100804
  Receipt Date: 20100726
  Transmission Date: 20110219
  Serious: Yes (Hospitalization)
  Sender: FDA-Public Use
  Company Number: CA-JNJFOC-20100708390

PATIENT
  Sex: Female

DRUGS (2)
  1. REMICADE [Suspect]
     Indication: CROHN'S DISEASE
     Dosage: SECOND INDUCTION DOSE
     Route: 042
  2. REMICADE [Suspect]
     Dosage: FIRST INDUCTION DOSE
     Route: 042

REACTIONS (1)
  - PANCREATITIS [None]
